FAERS Safety Report 7708476-9 (Version None)
Quarter: 2011Q3

REPORT INFORMATION
  Report Type: 
  Country: None (occurrence: None)
  Receive Date: 20110825
  Receipt Date: 20110816
  Transmission Date: 20111222
  Serious: Yes (Hospitalization)
  Sender: FDA-Public Use
  Company Number: US-BAYER-2011-035143

PATIENT
  Age: 33 Year
  Sex: Female
  Weight: 87.982 kg

DRUGS (3)
  1. YASMIN [Suspect]
     Indication: CONTRACEPTION
     Dosage: UNK
     Dates: start: 20070130, end: 20080716
  2. IBUPROFEN [Concomitant]
     Dosage: UNK UNK, PRN
     Dates: start: 20010101
  3. DROSPIRENONE AND ETHINYL ESTRADIOL [Suspect]
     Indication: CONTRACEPTION
     Dosage: UNK
     Dates: start: 20080716, end: 20090908

REACTIONS (5)
  - BILIARY DYSKINESIA [None]
  - GALLBLADDER DISORDER [None]
  - INJURY [None]
  - CHOLECYSTITIS [None]
  - CHOLELITHIASIS [None]
